FAERS Safety Report 9882574 (Version 2)
Quarter: 2014Q1

REPORT INFORMATION
  Report Type: Spontaneous
  Country: IT (occurrence: IT)
  Receive Date: 20140207
  Receipt Date: 20140301
  Transmission Date: 20141002
  Serious: Yes (Life-Threatening, Hospitalization)
  Sender: FDA-Public Use
  Company Number: IT-ASTRAZENECA-2014SE08457

PATIENT
  Age: 32547 Day
  Sex: Female

DRUGS (6)
  1. CRESTOR [Suspect]
     Route: 048
     Dates: start: 20140102, end: 20140107
  2. CORLENTOR [Suspect]
     Indication: ACUTE MYOCARDIAL INFARCTION
     Dosage: 5 MG COATED TABLET (DURING BREAKFAST AND DINNER)
     Route: 048
     Dates: start: 20140102, end: 20140107
  3. PLAVIX [Concomitant]
     Indication: ACUTE MYOCARDIAL INFARCTION
     Route: 048
     Dates: start: 20140102, end: 20140107
  4. SERENASE [Concomitant]
     Indication: PSYCHOMOTOR HYPERACTIVITY
     Dates: start: 20140102, end: 20140107
  5. SERENASE [Concomitant]
     Indication: PSYCHOMOTOR HYPERACTIVITY
     Dosage: 10 DROPS X 2
  6. SERENASE [Concomitant]
     Indication: PSYCHOMOTOR HYPERACTIVITY
     Dosage: OCCASIONALLY ADMINISTERED

REACTIONS (2)
  - Renal failure acute [Recovering/Resolving]
  - Hypertransaminasaemia [Recovering/Resolving]
